FAERS Safety Report 5168551-2 (Version None)
Quarter: 2006Q4

REPORT INFORMATION
  Report Type: 
  Country: None (occurrence: None)
  Receive Date: 20061208
  Receipt Date: 20061128
  Transmission Date: 20070319
  Serious: Yes (Hospitalization)
  Sender: FDA-Public Use
  Company Number: CA-ABBOTT-06P-028-0352023-00

PATIENT
  Sex: Female

DRUGS (4)
  1. MAVIK [Suspect]
     Indication: HYPERTENSION
     Route: 048
     Dates: start: 20060701, end: 20061123
  2. MAVIK [Suspect]
     Route: 048
     Dates: start: 20060501, end: 20060701
  3. MAVIK [Suspect]
     Route: 048
     Dates: start: 20061125
  4. MAVIK [Suspect]
     Dosage: 1
     Route: 048

REACTIONS (3)
  - BLEEDING TIME PROLONGED [None]
  - HAEMORRHAGE [None]
  - SYNCOPE [None]
